FAERS Safety Report 24210813 (Version 1)
Quarter: 2024Q3

REPORT INFORMATION
  Report Type: Spontaneous
  Country: US (occurrence: None)
  Receive Date: 20240813
  Receipt Date: 20240813
  Transmission Date: 20241017
  Serious: Yes (Life-Threatening, Hospitalization)
  Sender: Public
  Company Number: None

PATIENT
  Age: 61 Year
  Sex: Female
  Weight: 103.5 kg

DRUGS (6)
  1. WARFARIN [Suspect]
     Active Substance: WARFARIN
     Indication: Thrombosis prophylaxis
  2. mitral mechanica heart valve [Concomitant]
  3. HYDROXYZINE [Concomitant]
  4. WARFARIN [Concomitant]
  5. DIAZEPAM [Concomitant]
  6. rousuvastin [Concomitant]

REACTIONS (5)
  - International normalised ratio increased [None]
  - Choking [None]
  - Dysphagia [None]
  - Epiglottis dysfunction [None]
  - Laryngeal haematoma [None]

NARRATIVE: CASE EVENT DATE: 20230109
